FAERS Safety Report 13091356 (Version 1)
Quarter: 2017Q1

REPORT INFORMATION
  Report Type: Spontaneous
  Country: GB (occurrence: GB)
  Receive Date: 20170106
  Receipt Date: 20170106
  Transmission Date: 20170428
  Serious: Yes (Hospitalization)
  Sender: FDA-Public Use
  Company Number: GB-ACCORD-047191

PATIENT
  Age: 73 Year

DRUGS (13)
  1. PROPRANOLOL [Suspect]
     Active Substance: PROPRANOLOL HYDROCHLORIDE
     Indication: PRODUCT USED FOR UNKNOWN INDICATION
  2. OMEPRAZOLE. [Suspect]
     Active Substance: OMEPRAZOLE
     Indication: PRODUCT USED FOR UNKNOWN INDICATION
  3. ZAPAIN [Concomitant]
     Active Substance: ACETAMINOPHEN\CODEINE PHOSPHATE
     Dosage: 1 OR 2 TO BE TAKEN 4 TIMES A DAY. 30MG/ 500MG
  4. COLECALCIFEROL [Concomitant]
     Active Substance: CHOLECALCIFEROL
  5. SERTRALINE [Suspect]
     Active Substance: SERTRALINE HYDROCHLORIDE
     Indication: PRODUCT USED FOR UNKNOWN INDICATION
     Dosage: 50 MG ONE TO BE TAKEN EACH DAY REDUCING DOSE AFTER 100MG 1 WEEK THEN CHANGE TO MIRTAZEPINE
     Dates: start: 20160630
  6. SALBUTAMOL [Concomitant]
     Active Substance: ALBUTEROL
     Dosage: 100 MICROGRAMS/DOSE BREATH ACTUATED INHALER CFC FREE?ONE-TWO PUFFS TO BE INHALED UP TO FOUR TIME DA
     Route: 055
  7. CALCIUM CARBONATE. [Concomitant]
     Active Substance: CALCIUM CARBONATE
  8. MENTHOL. [Concomitant]
     Active Substance: MENTHOL
     Dosage: AS DIRECTED 500 GRAM
     Dates: start: 20160413
  9. SALMETEROL AND FLUTICASONE [Concomitant]
     Active Substance: FLUTICASONE PROPIONATE\SALMETEROL XINAFOATE
     Dosage: FLUTICASONE PROPIONATE 500MICROGRAMS/DOSE / SALMETEROL 50MICROGRAMS/DOSE INHALER
     Route: 055
  10. RISEDRONIC ACID [Concomitant]
     Active Substance: RISEDRONIC ACID
     Dosage: TUESDAY.
  11. TIOTROPIUM [Concomitant]
     Active Substance: TIOTROPIUM
  12. TRAMADOL. [Concomitant]
     Active Substance: TRAMADOL
     Dosage: 1 OR 2 EVERY 4 HOURS. MAXIMUM 8 CAPSULES IN 24 HOURS.112 CAPSULE - NOT TAKING.
     Dates: start: 20160606
  13. MIRTAZAPINE. [Suspect]
     Active Substance: MIRTAZAPINE
     Indication: PRODUCT USED FOR UNKNOWN INDICATION
     Dosage: AT NIGHT.

REACTIONS (4)
  - Hypotension [Recovered/Resolved]
  - Fall [Unknown]
  - Hyponatraemia [Recovered/Resolved]
  - Drug administration error [Recovered/Resolved]
